FAERS Safety Report 7941441-5 (Version None)
Quarter: 2011Q4

REPORT INFORMATION
  Report Type: 
  Country: None (occurrence: None)
  Receive Date: 20111122
  Receipt Date: 20111108
  Transmission Date: 20120403
  Serious: Yes (Death)
  Sender: FDA-Public Use
  Company Number: 1000022234

PATIENT
  Age: 23 Year
  Sex: Female

DRUGS (4)
  1. TERCIAN (CYAMEMAZINE) [Suspect]
     Indication: DEPRESSION
     Dates: start: 20080901
  2. LITHIUM CARBONATE [Suspect]
     Indication: DEPRESSION
     Dates: start: 20080901
  3. TRANXENE [Suspect]
     Indication: DEPRESSION
     Dosage: 15 MG (15 MG, 1 IN 1 D)
     Dates: start: 20080901, end: 20081014
  4. CITALOPRAM (CITALOPRAM HYDROBROMIDE) [Suspect]
     Indication: DEPRESSION
     Dates: start: 20080901

REACTIONS (6)
  - COMA [None]
  - COMPLETED SUICIDE [None]
  - INCORRECT DOSE ADMINISTERED [None]
  - ANXIETY [None]
  - DISCOMFORT [None]
  - EUPHORIC MOOD [None]
